FAERS Safety Report 16147945 (Version 1)
Quarter: 2019Q2

REPORT INFORMATION
  Report Type: Spontaneous
  Country: US (occurrence: US)
  Receive Date: 20190402
  Receipt Date: 20190402
  Transmission Date: 20190711
  Serious: No
  Sender: FDA-Public Use
  Company Number: US-ALLERGAN-1904672US

PATIENT
  Age: 24 Year
  Sex: Female

DRUGS (1)
  1. LILETTA [Suspect]
     Active Substance: LEVONORGESTREL
     Indication: PRODUCT USED FOR UNKNOWN INDICATION
     Dosage: 52 MG, SINGLE
     Route: 015
     Dates: start: 20190122, end: 20190122

REACTIONS (4)
  - Blood pressure decreased [Unknown]
  - Uterine spasm [Unknown]
  - Vomiting [Unknown]
  - Procedural pain [Unknown]

NARRATIVE: CASE EVENT DATE: 20190122
